FAERS Safety Report 6243498-9 (Version None)
Quarter: 2009Q2

REPORT INFORMATION
  Report Type: 
  Country: None (occurrence: None)
  Receive Date: 20090618
  Receipt Date: 20081121
  Transmission Date: 20091009
  Serious: Yes (Hospitalization)
  Sender: FDA-Public Use
  Company Number: CIP08001155

PATIENT
  Age: 68 Year
  Sex: Female
  Weight: 68 kg

DRUGS (13)
  1. ACTONEL [Suspect]
     Dosage: 35 MG ONCE WEEKLY, ORAL
     Route: 048
     Dates: start: 20060914, end: 20070917
  2. FOSAMAX [Suspect]
     Dosage: 10 MG DAILY, ORAL; 70 MG ONCE WEEKLY, ORAL
     Route: 048
     Dates: start: 19990203, end: 20020502
  3. FOSAMAX [Suspect]
     Dosage: 10 MG DAILY, ORAL; 70 MG ONCE WEEKLY, ORAL
     Route: 048
     Dates: start: 20020503, end: 20060907
  4. ZETIA [Concomitant]
  5. LIPITOR [Concomitant]
  6. LISINOPRIL [Concomitant]
  7. METFORMIN HCL [Concomitant]
  8. OMEPRAZOLE [Concomitant]
  9. ASPIRIN [Concomitant]
  10. ERGOCALCIFEROL [Concomitant]
  11. TYLENOL ARTHRITIS (PARACETAMOL) [Concomitant]
  12. OSCAL /00108001/ (CALCIUM CARBONATE) [Concomitant]
  13. QUININE (QUININE) [Concomitant]

REACTIONS (11)
  - CONDITION AGGRAVATED [None]
  - FISTULA DISCHARGE [None]
  - HYPOPHAGIA [None]
  - MASTICATION DISORDER [None]
  - NIGHT SWEATS [None]
  - OROANTRAL FISTULA [None]
  - OSTEOMYELITIS [None]
  - PRIMARY SEQUESTRUM [None]
  - PYREXIA [None]
  - SINUSITIS [None]
  - TOOTH FRACTURE [None]
